FAERS Safety Report 6254496-3 (Version None)
Quarter: 2009Q3

REPORT INFORMATION
  Report Type: 
  Country: None (occurrence: None)
  Receive Date: 20090702
  Receipt Date: 20090626
  Transmission Date: 20100115
  Serious: No
  Sender: FDA-Public Use
  Company Number: US-EISAI INC.-E2080-00180-SPO-US

PATIENT
  Age: 14 Year
  Sex: Male

DRUGS (6)
  1. BANZEL [Suspect]
     Route: 048
     Dates: end: 20090601
  2. BANZEL [Suspect]
     Route: 048
     Dates: start: 20090601
  3. TRANXENE [Concomitant]
     Dosage: UNKNOWN
     Route: 065
  4. PHENYTOIN [Concomitant]
     Dosage: UNKNOWN
     Route: 065
  5. DIAZEPAM [Concomitant]
     Dosage: UNKNOWN
     Route: 065
  6. FELBATOL [Concomitant]
     Dosage: UNKNOWN
     Route: 065

REACTIONS (1)
  - APHASIA [None]
